FAERS Safety Report 14128534 (Version 2)
Quarter: 2017Q4

REPORT INFORMATION
  Report Type: Spontaneous
  Country: US (occurrence: US)
  Receive Date: 20171026
  Receipt Date: 20171130
  Transmission Date: 20180321
  Serious: Yes (Other)
  Sender: FDA-Public Use
  Company Number: US-PFIZER INC-2017456541

PATIENT
  Age: 68 Year
  Sex: Female
  Weight: 68.4 kg

DRUGS (1)
  1. CHANTIX [Suspect]
     Active Substance: VARENICLINE TARTRATE
     Indication: SMOKING CESSATION THERAPY
     Dosage: 1 MG, 2X/DAY
     Route: 048

REACTIONS (4)
  - Compression fracture [Unknown]
  - Pain [Recovered/Resolved with Sequelae]
  - Spinal column stenosis [Recovered/Resolved with Sequelae]
  - Osteoporosis [Unknown]

NARRATIVE: CASE EVENT DATE: 2015
